FAERS Safety Report 9649357 (Version 1)
Quarter: 2013Q4

REPORT INFORMATION
  Report Type: Spontaneous
  Country: GB (occurrence: GB)
  Receive Date: 20131028
  Receipt Date: 20131028
  Transmission Date: 20140711
  Serious: Yes (Hospitalization)
  Sender: FDA-Public Use
  Company Number: GB-JNJFOC-20131012431

PATIENT
  Sex: 0

DRUGS (2)
  1. XEPLION [Suspect]
     Indication: PSYCHOTIC DISORDER
     Dosage: 50 MG-150 MG FOR 3 MONTHS.
     Route: 030
  2. XEPLION [Suspect]
     Indication: SCHIZOPHRENIA
     Dosage: 50 MG-150 MG FOR 3 MONTHS.
     Route: 030

REACTIONS (1)
  - Hospitalisation [Unknown]
